FAERS Safety Report 14794139 (Version 3)
Quarter: 2018Q4

REPORT INFORMATION
  Report Type: Spontaneous
  Country: FR (occurrence: FR)
  Receive Date: 20180423
  Receipt Date: 20181026
  Transmission Date: 20190204
  Serious: Yes (Life-Threatening)
  Sender: FDA-Public Use
  Company Number: FR-PFIZER INC-2018162761

PATIENT
  Age: 55 Year
  Sex: Female

DRUGS (4)
  1. CYTARABINE. [Suspect]
     Active Substance: CYTARABINE
     Indication: TRANSPLANT
     Dosage: UNK
     Route: 041
     Dates: start: 20161024
  2. ALKERAN [Suspect]
     Active Substance: MELPHALAN
     Indication: TRANSPLANT
     Dosage: UNK
     Route: 041
     Dates: start: 20161024
  3. BICNU [Suspect]
     Active Substance: CARMUSTINE
     Indication: TRANSPLANT
     Dosage: UNK
     Route: 041
     Dates: start: 20161024
  4. ETOPOSIDE. [Suspect]
     Active Substance: ETOPOSIDE
     Indication: TRANSPLANT
     Dosage: UNK
     Route: 041
     Dates: start: 20161024

REACTIONS (2)
  - Product use in unapproved indication [Unknown]
  - Venoocclusive disease [Not Recovered/Not Resolved]

NARRATIVE: CASE EVENT DATE: 20161024
